FAERS Safety Report 18893996 (Version 1)
Quarter: 2021Q1

REPORT INFORMATION
  Report Type: Report from Study
  Country: None (occurrence: US)
  Receive Date: 20210215
  Receipt Date: 20210215
  Transmission Date: 20210420
  Serious: Yes (Other)
  Sender: FDA-Public Use
  Company Number: US-ABBVIE-21K-163-3714844-00

PATIENT
  Age: 65 Year
  Sex: Female

DRUGS (2)
  1. IMBRUVICA [Suspect]
     Active Substance: IBRUTINIB
     Indication: CHRONIC LYMPHOCYTIC LEUKAEMIA
     Route: 048
  2. IMBRUVICA [Suspect]
     Active Substance: IBRUTINIB
     Indication: CHRONIC LYMPHOCYTIC LEUKAEMIA
     Route: 048
     Dates: start: 201804

REACTIONS (7)
  - Cough [Unknown]
  - Sudden hearing loss [Recovering/Resolving]
  - Gastrointestinal mucosal exfoliation [Unknown]
  - Pneumonia aspiration [Unknown]
  - Oesophagitis [Unknown]
  - Blood blister [Unknown]
  - Mastoiditis [Unknown]

NARRATIVE: CASE EVENT DATE: 202012
